FAERS Safety Report 8473753-3 (Version None)
Quarter: 2012Q2

REPORT INFORMATION
  Report Type: 
  Country: None (occurrence: None)
  Receive Date: 20120628
  Receipt Date: 20111024
  Transmission Date: 20120825
  Serious: Yes (Death)
  Sender: FDA-Public Use
  Company Number: US-MYLANLABS-2011S1021949

PATIENT
  Age: 74 Year
  Sex: Male

DRUGS (2)
  1. CLOZAPINE [Suspect]
     Route: 048
     Dates: start: 20110928, end: 20111004
  2. BACTRIM DS [Concomitant]
     Dates: start: 20110930, end: 20110101

REACTIONS (1)
  - PARKINSON'S DISEASE [None]
